FAERS Safety Report 9786235 (Version 1)
Quarter: 2013Q4

REPORT INFORMATION
  Report Type: Spontaneous
  Country: FR (occurrence: FR)
  Receive Date: 20131227
  Receipt Date: 20131227
  Transmission Date: 20140711
  Serious: Yes (Hospitalization)
  Sender: FDA-Public Use
  Company Number: FR-PFIZER INC-2013369466

PATIENT
  Age: 61 Year
  Sex: Male

DRUGS (8)
  1. CISPLATIN TEVA [Suspect]
     Dosage: 100 MG/KG, UNK
     Route: 041
     Dates: start: 20131009, end: 20131009
  2. ERBITUX [Suspect]
     Dosage: 400 MG/M2, UNK
     Route: 042
     Dates: start: 20131009, end: 20131009
  3. LEVOTHYROX [Concomitant]
     Dosage: UNK
  4. CORDARONE [Concomitant]
     Dosage: UNK
  5. KARDEGIC [Concomitant]
     Dosage: UNK
  6. CRESTOR [Concomitant]
     Dosage: UNK
  7. DUROGESIC [Concomitant]
     Dosage: UNK
  8. FLUOROURACIL [Concomitant]
     Dosage: 4000 MG/M2
     Dates: start: 20131009

REACTIONS (7)
  - Renal tubular disorder [Not Recovered/Not Resolved]
  - Lung disorder [Not Recovered/Not Resolved]
  - Renal tubular necrosis [Not Recovered/Not Resolved]
  - Neutropenia [Not Recovered/Not Resolved]
  - Agranulocytosis [Recovered/Resolved]
  - Hypomagnesaemia [Not Recovered/Not Resolved]
  - Hypokalaemia [Not Recovered/Not Resolved]
